FAERS Safety Report 19215802 (Version 1)
Quarter: 2021Q2

REPORT INFORMATION
  Report Type: Spontaneous
  Country: HR (occurrence: HR)
  Receive Date: 20210505
  Receipt Date: 20210505
  Transmission Date: 20210717
  Serious: Yes (Hospitalization)
  Sender: FDA-Public Use
  Company Number: HR-TEVA-2021-HR-1907052

PATIENT
  Age: 76 Year
  Sex: Male

DRUGS (4)
  1. CISPLATIN. [Suspect]
     Active Substance: CISPLATIN
     Indication: GASTRIC CANCER
     Dosage: RECEIVED 5 CYCLES
     Route: 065
     Dates: start: 201707, end: 201710
  2. 5?FLUOROURACIL [Suspect]
     Active Substance: FLUOROURACIL
     Indication: GASTRIC CANCER
     Dosage: RECEIVED 5 CYCLES
     Route: 065
     Dates: start: 201707, end: 201710
  3. RAMUCIRUMAB [Suspect]
     Active Substance: RAMUCIRUMAB
     Indication: METASTATIC GASTRIC CANCER
     Dosage: RAMUCIRUMAB 8 MG/KG ON DAY 1 AND DAY 15, EVERY 4 WEEKS
     Route: 065
     Dates: start: 201809
  4. PACLITAXEL. [Suspect]
     Active Substance: PACLITAXEL
     Indication: METASTATIC GASTRIC CANCER
     Dosage: 80 MG/M2 ON DAY 1, DAY 8, AND DAY 15 EVERY 4 WEEKS
     Route: 065
     Dates: start: 201809

REACTIONS (3)
  - Post procedural haemorrhage [Unknown]
  - Fournier^s gangrene [Unknown]
  - Symptom masked [Unknown]
